FAERS Safety Report 10250591 (Version 1)
Quarter: 2014Q2

REPORT INFORMATION
  Report Type: Spontaneous
  Country: SE (occurrence: SE)
  Receive Date: 20140620
  Receipt Date: 20140620
  Transmission Date: 20141212
  Serious: Yes (Death)
  Sender: FDA-Public Use
  Company Number: SE-ASTRAZENECA-2014SE45095

PATIENT
  Age: 61 Year
  Sex: Female

DRUGS (8)
  1. SEROQUEL DEPOT [Suspect]
     Indication: PHOBIA
     Route: 048
     Dates: start: 20140507, end: 20140522
  2. LETROZOLE [Concomitant]
  3. LYRICA [Concomitant]
  4. CYMBALTA [Concomitant]
  5. TETRACYKLIN MEDA [Concomitant]
  6. TREO COMP [Concomitant]
  7. OXASCAND [Concomitant]
  8. PROPAVAN [Concomitant]

REACTIONS (1)
  - Pulmonary embolism [Fatal]
